FAERS Safety Report 5072363-8 (Version None)
Quarter: 2006Q3

REPORT INFORMATION
  Report Type: 
  Country: None (occurrence: None)
  Receive Date: 20060807
  Receipt Date: 20060727
  Transmission Date: 20061208
  Serious: Yes (Death)
  Sender: FDA-Public Use
  Company Number: GB-JNJFOC-20060705927

PATIENT
  Age: 79 Year
  Sex: Female

DRUGS (5)
  1. TRAMADOL HCL [Suspect]
     Indication: SCIATICA
  2. AMITRIPTYLINE HCL [Interacting]
     Indication: DEPRESSION
  3. CO-PROXAMOL [Concomitant]
  4. MORPHINE [Concomitant]
  5. ROFECOXIB [Concomitant]

REACTIONS (2)
  - DRUG INTERACTION [None]
  - SEROTONIN SYNDROME [None]
